FAERS Safety Report 24308979 (Version 1)
Quarter: 2024Q3

REPORT INFORMATION
  Report Type: Report from Study
  Country: TH (occurrence: TH)
  Receive Date: 20240911
  Receipt Date: 20240911
  Transmission Date: 20241017
  Serious: Yes (Hospitalization, Other)
  Sender: NOVARTIS
  Company Number: TH-002147023-NVSC2024TH096264

PATIENT
  Sex: Female

DRUGS (16)
  1. KISQALI [Suspect]
     Active Substance: RIBOCICLIB
     Indication: Breast cancer metastatic
     Dosage: 200 MG, QD (2 TABLETS)
     Route: 048
     Dates: start: 20230724
  2. KISQALI [Suspect]
     Active Substance: RIBOCICLIB
     Dosage: 200 MG, QD (1 TABLET)
     Route: 048
     Dates: start: 20231009
  3. KISQALI [Suspect]
     Active Substance: RIBOCICLIB
     Dosage: 200 MG, QD (2 TABLETS)
     Route: 048
     Dates: start: 20231024
  4. KISQALI [Suspect]
     Active Substance: RIBOCICLIB
     Dosage: 2 DOSAGE FORM, QD (2 TABLETS)
     Route: 048
     Dates: start: 20231121
  5. KISQALI [Suspect]
     Active Substance: RIBOCICLIB
     Dosage: 2 DOSAGE FORM, QD (2 TABLETS)
     Route: 048
     Dates: start: 20231219
  6. KISQALI [Suspect]
     Active Substance: RIBOCICLIB
     Dosage: 2 DOSAGE FORM, QD (2 TABLETS)
     Route: 048
     Dates: start: 20240116
  7. KISQALI [Suspect]
     Active Substance: RIBOCICLIB
     Dosage: 200 MG, QD (3 TABLETS)
     Route: 048
     Dates: start: 20240130
  8. KISQALI [Suspect]
     Active Substance: RIBOCICLIB
     Dosage: 3 DOSAGE FORM, QD (3 TABLETS)
     Route: 048
     Dates: start: 20240213
  9. KISQALI [Suspect]
     Active Substance: RIBOCICLIB
     Dosage: 200 MG, QD (2 TABLETS)
     Route: 048
     Dates: start: 20240312
  10. KISQALI [Suspect]
     Active Substance: RIBOCICLIB
     Dosage: 2 DOSAGE FORM, QD (2  TABLETS)
     Route: 048
     Dates: start: 20240409
  11. KISQALI [Suspect]
     Active Substance: RIBOCICLIB
     Dosage: 2 DOSAGE FORM, QD (2 TABLETS)
     Route: 048
     Dates: start: 20240507
  12. KISQALI [Suspect]
     Active Substance: RIBOCICLIB
     Dosage: 200 MG, UNKNOWN (21 TABLETS)
     Route: 065
  13. FULVESTRANT [Concomitant]
     Active Substance: FULVESTRANT
     Indication: Product used for unknown indication
     Dosage: (SAN~250 MG 5 ML) 2 AMPULES
     Route: 065
  14. GABAPENTIN [Concomitant]
     Active Substance: GABAPENTIN
     Indication: Product used for unknown indication
     Dosage: 300 MG, (BERLONTI~300 MG 20) CAPSULES
     Route: 065
  15. LEVOCETIRIZINE [Concomitant]
     Active Substance: LEVOCETIRIZINE
     Indication: Product used for unknown indication
     Dosage: 5 MG, UNKNOWN (10 TABLETS)
     Route: 065
  16. FENOTEROL HYDROBROMIDE\IPRATROPIUM BROMIDE [Concomitant]
     Active Substance: FENOTEROL HYDROBROMIDE\IPRATROPIUM BROMIDE
     Indication: Product used for unknown indication
     Dosage: 10 ML, UNKNOWN (1 BOTTLE)
     Route: 065

REACTIONS (2)
  - Pulmonary oedema [Unknown]
  - Renal impairment [Unknown]
